FAERS Safety Report 6903587-X (Version None)
Quarter: 2010Q3

REPORT INFORMATION
  Report Type: 
  Country: None (occurrence: None)
  Receive Date: 20100803
  Receipt Date: 20081030
  Transmission Date: 20110219
  Serious: No
  Sender: FDA-Public Use
  Company Number: US-PFIZER INC-2008092639

PATIENT
  Sex: Female
  Weight: 70 kg

DRUGS (12)
  1. LYRICA [Suspect]
     Indication: PAIN
     Route: 048
     Dates: start: 20080731
  2. LYRICA [Suspect]
     Indication: FIBROMYALGIA
  3. TRAZODONE [Concomitant]
  4. ACETYLSALICYLIC ACID SRT [Concomitant]
  5. RANITIDINE [Concomitant]
  6. SYNTHROID [Concomitant]
  7. METOPROLOL [Concomitant]
  8. TRAMADOL HYDROCHLORIDE [Concomitant]
  9. REGLAN [Concomitant]
  10. AMBIEN [Concomitant]
  11. DYNACIRC [Concomitant]
  12. VITAMIN TAB [Concomitant]

REACTIONS (3)
  - PAIN [None]
  - URINARY RETENTION [None]
  - URINARY TRACT INFECTION [None]
